FAERS Safety Report 7390579-2 (Version None)
Quarter: 2011Q2

REPORT INFORMATION
  Report Type: 
  Country: None (occurrence: None)
  Receive Date: 20110404
  Receipt Date: 20110322
  Transmission Date: 20111010
  Serious: Yes (Death)
  Sender: FDA-Public Use
  Company Number: CA-BIOGENIDEC-2011BI011056

PATIENT
  Age: 46 Year
  Sex: Male

DRUGS (4)
  1. ANTI-DEPRESSANTS [Concomitant]
     Indication: MAJOR DEPRESSION
     Dates: start: 20101201
  2. SOLU-MEDROL [Concomitant]
     Dates: start: 20100901
  3. TYSABRI [Suspect]
     Indication: RELAPSING-REMITTING MULTIPLE SCLEROSIS
     Route: 042
     Dates: start: 20101001, end: 20110315
  4. TYSABRI [Suspect]
     Route: 042
     Dates: start: 20090720, end: 20100526

REACTIONS (1)
  - COMPLETED SUICIDE [None]
